FAERS Safety Report 14475295 (Version 1)
Quarter: 2018Q1

REPORT INFORMATION
  Report Type: Report from Study
  Country: BE (occurrence: BE)
  Receive Date: 20180201
  Receipt Date: 20180201
  Transmission Date: 20180509
  Serious: Yes (Life-Threatening, Hospitalization, Disabling, Other)
  Sender: FDA-Public Use
  Company Number: BE-BAUSCH-BL-2018-002609

PATIENT
  Age: 56 Year
  Sex: Female
  Weight: 127 kg

DRUGS (4)
  1. DEXAMETHASONE. [Suspect]
     Active Substance: DEXAMETHASONE
     Dosage: IN 28 DAYS
     Route: 048
     Dates: start: 20160316
  2. POMALIDOMIDE [Suspect]
     Active Substance: POMALIDOMIDE
     Indication: PLASMA CELL MYELOMA RECURRENT
     Dosage: IN 28 DAYS
     Route: 048
     Dates: start: 20150706, end: 20150726
  3. POMALIDOMIDE [Suspect]
     Active Substance: POMALIDOMIDE
     Dosage: IN 28 DAYS
     Route: 048
     Dates: start: 20160316
  4. DEXAMETHASONE. [Suspect]
     Active Substance: DEXAMETHASONE
     Indication: PLASMA CELL MYELOMA RECURRENT
     Dosage: IN 28 DAYS
     Route: 048
     Dates: start: 20150706, end: 20150727

REACTIONS (5)
  - Plasmacytoma [Not Recovered/Not Resolved]
  - Ischaemic stroke [Recovered/Resolved with Sequelae]
  - Basal cell carcinoma [Not Recovered/Not Resolved]
  - Rash vesicular [Recovered/Resolved]
  - Pulmonary oedema [Recovered/Resolved with Sequelae]

NARRATIVE: CASE EVENT DATE: 20160217
